FAERS Safety Report 9070828 (Version 1)
Quarter: 2013Q1

REPORT INFORMATION
  Report Type: Spontaneous
  Country: US (occurrence: US)
  Receive Date: 20130206
  Receipt Date: 20130206
  Transmission Date: 20140127
  Serious: No
  Sender: FDA-Public Use
  Company Number: US-ALLERGAN-1206060US

PATIENT
  Age: 78 Year
  Sex: Female

DRUGS (2)
  1. REFRESH [Suspect]
     Indication: DRY EYE
     Route: 047
  2. RESTASIS? [Suspect]
     Indication: DRY EYE
     Dosage: UNK
     Route: 047
     Dates: start: 20050623, end: 20110806

REACTIONS (1)
  - Eye irritation [Not Recovered/Not Resolved]
